FAERS Safety Report 6094416-8 (Version None)
Quarter: 2009Q1

REPORT INFORMATION
  Report Type: 
  Country: None (occurrence: None)
  Receive Date: 20090226
  Receipt Date: 20080411
  Transmission Date: 20090719
  Serious: No
  Sender: FDA-Public Use
  Company Number: A0723901A

PATIENT
  Age: 67 Year
  Sex: Female

DRUGS (2)
  1. ALKERAN [Suspect]
     Indication: AMYLOIDOSIS
     Dosage: 13.5MG PER DAY
     Route: 048
  2. UNKNOWN MEDICATION [Concomitant]

REACTIONS (1)
  - FLUSHING [None]
